FAERS Safety Report 5625445-3 (Version None)
Quarter: 2008Q1

REPORT INFORMATION
  Report Type: 
  Country: None (occurrence: None)
  Receive Date: 20080211
  Receipt Date: 20080129
  Transmission Date: 20080703
  Serious: Yes (Death, Hospitalization, Other)
  Sender: FDA-Public Use
  Company Number: 44777

PATIENT
  Age: 75 Year
  Sex: Female
  Weight: 81.6475 kg

DRUGS (3)
  1. NOREPINEPHRINE BITARTRATE [Suspect]
     Indication: BLOOD PRESSURE FLUCTUATION
  2. WELLBUTRIN                             (FOR DEPRESSION) [Concomitant]
  3. CYMBALTA [Concomitant]

REACTIONS (2)
  - POST PROCEDURAL INFECTION [None]
  - SEPTIC SHOCK [None]
